FAERS Safety Report 14615997 (Version 1)
Quarter: 2018Q1

REPORT INFORMATION
  Report Type: Spontaneous
  Country: FR (occurrence: FR)
  Receive Date: 20180309
  Receipt Date: 20180309
  Transmission Date: 20180509
  Serious: Yes (Other)
  Sender: FDA-Public Use
  Company Number: FR-MERCK KGAA-2043380

PATIENT
  Age: 59 Year
  Sex: Female
  Weight: 79 kg

DRUGS (4)
  1. NOVOTHYROX [Suspect]
     Active Substance: LEVOTHYROXINE SODIUM
     Indication: HYPOTHYROIDISM
     Route: 048
     Dates: start: 20170101, end: 20171006
  2. LEXOMIL [Concomitant]
     Active Substance: BROMAZEPAM
  3. INEXIUM [Concomitant]
     Active Substance: ESOMEPRAZOLE
  4. ATENOLOL. [Suspect]
     Active Substance: ATENOLOL

REACTIONS (17)
  - Dyspnoea [Not Recovered/Not Resolved]
  - Feeling jittery [Recovering/Resolving]
  - Insomnia [Recovering/Resolving]
  - Product formulation issue [Recovered/Resolved]
  - Amnesia [Recovering/Resolving]
  - Back pain [Recovering/Resolving]
  - Feeling abnormal [Recovering/Resolving]
  - Weight increased [Recovering/Resolving]
  - Tremor [Recovering/Resolving]
  - Diffuse alopecia [Recovering/Resolving]
  - Blood thyroid stimulating hormone normal [Unknown]
  - Headache [Recovering/Resolving]
  - Tachycardia [Recovering/Resolving]
  - Gingival swelling [Recovering/Resolving]
  - Pruritus [Recovering/Resolving]
  - Fatigue [Recovering/Resolving]
  - Suicidal ideation [Recovering/Resolving]

NARRATIVE: CASE EVENT DATE: 20170101
